FAERS Safety Report 14448477 (Version 1)
Quarter: 2018Q1

REPORT INFORMATION
  Report Type: Report from Study
  Country: IT (occurrence: IT)
  Receive Date: 20180126
  Receipt Date: 20180126
  Transmission Date: 20180509
  Serious: Yes (Hospitalization, Other)
  Sender: FDA-Public Use
  Company Number: IT-PFM-2017-12868

PATIENT

DRUGS (6)
  1. BACTRIM [Concomitant]
     Active Substance: SULFAMETHOXAZOLE\TRIMETHOPRIM
     Indication: PRODUCT USED FOR UNKNOWN INDICATION
     Dosage: UNK
     Route: 065
     Dates: start: 20171113
  2. TALAVIR [Concomitant]
     Active Substance: VALACYCLOVIR HYDROCHLORIDE
     Indication: PRODUCT USED FOR UNKNOWN INDICATION
     Dosage: UNK
     Route: 065
     Dates: start: 20171113
  3. ENDOXAN [Suspect]
     Active Substance: CYCLOPHOSPHAMIDE
     Indication: LYMPHOMA
     Dosage: 50 MG (CUMULATIVE DOSE 1150 MG)
     Route: 048
     Dates: start: 20171115, end: 20171227
  4. DELTACORTENE [Suspect]
     Active Substance: PREDNISONE
     Indication: LYMPHOMA
     Dosage: 25 MG (CUMULATIVE DOSE 725 MG)
     Route: 048
     Dates: start: 20171115, end: 20171225
  5. ZARZIO [Concomitant]
     Active Substance: FILGRASTIM
     Indication: PRODUCT USED FOR UNKNOWN INDICATION
     Dosage: UNK
     Route: 065
     Dates: start: 20171130, end: 20171130
  6. VINORELBINE TARTRATE. [Suspect]
     Active Substance: VINORELBINE TARTRATE
     Indication: LYMPHOMA
     Dosage: 30.0 MG (CUMULATIVE DOSE 300 MG)
     Route: 048
     Dates: start: 20171115, end: 20171225

REACTIONS (5)
  - Pyrexia [Recovered/Resolved]
  - Hypovolaemic shock [Recovered/Resolved]
  - Enterococcal sepsis [Recovered/Resolved]
  - Diarrhoea [Recovered/Resolved]
  - Vomiting [Recovered/Resolved]

NARRATIVE: CASE EVENT DATE: 20171226
